FAERS Safety Report 7866784-5 (Version None)
Quarter: 2011Q4

REPORT INFORMATION
  Report Type: 
  Country: None (occurrence: None)
  Receive Date: 20111028
  Receipt Date: 20110818
  Transmission Date: 20120403
  Serious: No
  Sender: FDA-Public Use
  Company Number: US-GLAXOSMITHKLINE-A0941559A

PATIENT
  Age: 64 Year
  Sex: Female

DRUGS (14)
  1. XOPENEX [Concomitant]
  2. ALPRAZOLAM [Concomitant]
  3. VITAMIN B-12 [Concomitant]
  4. SIMVASTATIN [Concomitant]
  5. OXYGEN [Concomitant]
  6. LISINOPRIL [Concomitant]
  7. ASPIRIN [Concomitant]
  8. UNKNOWN MEDICATION [Concomitant]
  9. VENTOLIN [Suspect]
     Indication: CHRONIC OBSTRUCTIVE PULMONARY DISEASE
     Dosage: 1PUFF AS REQUIRED
     Route: 055
     Dates: start: 20090101
  10. ALBUTEROL [Concomitant]
  11. PAXIL [Concomitant]
  12. LEVOTHYROXINE SODIUM [Concomitant]
  13. ADVAIR DISKUS 100/50 [Suspect]
     Indication: CHRONIC OBSTRUCTIVE PULMONARY DISEASE
     Dosage: 1PUFF TWICE PER DAY
     Route: 055
  14. ISOSORBIDE DINITRATE [Concomitant]

REACTIONS (15)
  - PRURITUS [None]
  - MICTURITION URGENCY [None]
  - WHEEZING [None]
  - DRUG INEFFECTIVE [None]
  - HYPERHIDROSIS [None]
  - STOMATITIS [None]
  - MOOD ALTERED [None]
  - FATIGUE [None]
  - BURNING SENSATION [None]
  - TREMOR [None]
  - DECREASED APPETITE [None]
  - URINARY INCONTINENCE [None]
  - PAIN [None]
  - DRY MOUTH [None]
  - FEELING HOT [None]
